FAERS Safety Report 14068452 (Version 1)
Quarter: 2017Q4

REPORT INFORMATION
  Report Type: Spontaneous
  Country: US (occurrence: None)
  Receive Date: 20171010
  Receipt Date: 20171010
  Transmission Date: 20180321
  Serious: No
  Sender: FDA-Public Use
  Company Number: None

PATIENT
  Age: 36 Year
  Sex: Female

DRUGS (2)
  1. CYCLOSPORINE CAP MOD 100MG [Suspect]
     Active Substance: CYCLOSPORINE
  2. SILIQ [Concomitant]
     Active Substance: BRODALUMAB

REACTIONS (5)
  - Abdominal pain upper [None]
  - Drug dispensing error [None]
  - Depression [None]
  - Drug prescribing error [None]
  - Drug dose omission [None]

NARRATIVE: CASE EVENT DATE: 20171010
